FAERS Safety Report 5378396-6 (Version None)
Quarter: 2007Q3

REPORT INFORMATION
  Report Type: 
  Country: None (occurrence: None)
  Receive Date: 20070702
  Receipt Date: 20070702
  Transmission Date: 20080115
  Serious: Yes (Hospitalization)
  Sender: FDA-Public Use
  Company Number: None

PATIENT
  Sex: Male
  Weight: 14.4 kg

DRUGS (5)
  1. MERCAPTOPURINE [Suspect]
     Dosage: 2800 MG
  2. METHOTREXATE [Suspect]
     Dosage: 100 MG
  3. PEG-L- ASPARAGINASE (K-H) [Suspect]
     Dosage: 3000 IU
  4. VINCRISTINE SULFATE [Suspect]
     Dosage: 1.8 MG
  5. DEXAMETHASONE 0.5MG TAB [Suspect]
     Dosage: 40 MG

REACTIONS (14)
  - ACTIVATED PARTIAL THROMBOPLASTIN TIME PROLONGED [None]
  - BLOOD GLUCOSE DECREASED [None]
  - BLOOD INSULIN DECREASED [None]
  - BLOOD PRESSURE DIASTOLIC DECREASED [None]
  - GAIT DISTURBANCE [None]
  - HAEMOGLOBIN DECREASED [None]
  - HEART RATE INCREASED [None]
  - HYPERHIDROSIS [None]
  - HYPOTHERMIA [None]
  - NEUTROPHIL COUNT DECREASED [None]
  - PERIPHERAL COLDNESS [None]
  - PROTHROMBIN TIME PROLONGED [None]
  - SOMNOLENCE [None]
  - TEMPERATURE REGULATION DISORDER [None]
